FAERS Safety Report 5161490-2 (Version None)
Quarter: 2006Q4

REPORT INFORMATION
  Report Type: 
  Country: None (occurrence: None)
  Receive Date: 20061130
  Receipt Date: 20060821
  Transmission Date: 20070319
  Serious: No
  Sender: FDA-Public Use
  Company Number: US-GLAXOSMITHKLINE-A0617504A

PATIENT
  Age: 54 Year
  Sex: Female

DRUGS (4)
  1. WELLBUTRIN XL [Suspect]
     Indication: DEPRESSION
     Dosage: 150MG PER DAY
     Route: 048
     Dates: start: 20060601, end: 20060814
  2. AMBIEN [Concomitant]
  3. CYMBALTA [Concomitant]
  4. TYLENOL [Concomitant]

REACTIONS (1)
  - PARANOIA [None]
